FAERS Safety Report 8343731-3 (Version None)
Quarter: 2012Q2

REPORT INFORMATION
  Report Type: 
  Country: None (occurrence: None)
  Receive Date: 20120508
  Receipt Date: 20120508
  Transmission Date: 20120825
  Serious: Yes (Other)
  Sender: FDA-Public Use
  Company Number: None

PATIENT
  Sex: Female
  Weight: 100 kg

DRUGS (5)
  1. ORTHO TRI-CYCLEN [Concomitant]
  2. NORDITROPIN [Suspect]
     Indication: GROWTH HORMONE DEFICIENCY
     Dosage: 2.4 MG
     Route: 058
     Dates: start: 20080428, end: 20120507
  3. NORDITROPIN [Suspect]
     Indication: BODY HEIGHT BELOW NORMAL
     Dosage: 2.4 MG
     Route: 058
     Dates: start: 20080428, end: 20120507
  4. LEVOXYL [Concomitant]
  5. CORTEF [Concomitant]

REACTIONS (3)
  - NEOPLASM PROGRESSION [None]
  - CRANIOPHARYNGIOMA [None]
  - CEREBRAL CYST [None]
